FAERS Safety Report 7323137 (Version 7)
Quarter: 2013Q2

REPORT INFORMATION
  Report Type: Report from Study
  Country: BR (occurrence: BR)
  Receive Date: 20100317
  Receipt Date: 20130522
  Transmission Date: 20140414
  Serious: Yes (Death, Hospitalization)
  Sender: FDA-Public Use
  Company Number: BR-PFIZER INC-BR-WYE-H14093510

PATIENT
  Age: 68 Year
  Sex: Female
  Weight: 76 kg

DRUGS (3)
  1. TORISEL [Suspect]
     Indication: RENAL CELL CARCINOMA
     Dosage: 25.0 MG, ^ONCE EVERY ONCE WEEK^
     Route: 042
     Dates: start: 20091223, end: 20100310
  2. AVASTIN [Suspect]
     Indication: RENAL CELL CARCINOMA
     Dosage: 10 MG/KG, EVERY OTHER WEEK
     Route: 042
     Dates: start: 20091223, end: 20100310
  3. ADALAT [Concomitant]
     Indication: HYPERTENSION
     Dosage: 10 MG, SINGLE
     Route: 060
     Dates: start: 20100303, end: 20100303

REACTIONS (1)
  - Pneumonia [Fatal]
